FAERS Safety Report 5610740-4 (Version None)
Quarter: 2008Q1

REPORT INFORMATION
  Report Type: 
  Country: None (occurrence: None)
  Receive Date: 20080201
  Receipt Date: 20080126
  Transmission Date: 20080703
  Serious: Yes (Death)
  Sender: FDA-Public Use
  Company Number: PHNU2008DE00728

PATIENT
  Age: 77 Year
  Sex: Female

DRUGS (1)
  1. GLEEVEC [Suspect]
     Dosage: 400 MG/DAY
     Route: 048
     Dates: start: 20040101

REACTIONS (2)
  - CORONARY ARTERY DISEASE [None]
  - LEFT VENTRICULAR FAILURE [None]
